FAERS Safety Report 24322247 (Version 1)
Quarter: 2024Q3

REPORT INFORMATION
  Report Type: Spontaneous
  Country: CA (occurrence: CA)
  Receive Date: 20240916
  Receipt Date: 20240916
  Transmission Date: 20241017
  Serious: Yes (Other)
  Sender: MERCK
  Company Number: CA-009507513-2409CAN004665

PATIENT
  Age: 44 Year
  Sex: Male

DRUGS (4)
  1. EMEND [Suspect]
     Active Substance: APREPITANT
     Indication: Bullous impetigo
     Dosage: UNK
     Route: 065
  2. HYDROXYZINE [Suspect]
     Active Substance: HYDROXYZINE HYDROCHLORIDE
     Indication: Bullous impetigo
     Dosage: UNK
     Route: 065
  3. METHOTREXATE [Suspect]
     Active Substance: METHOTREXATE
     Indication: Bullous impetigo
     Dosage: UNK
     Route: 058
  4. PREGABALIN [Suspect]
     Active Substance: PREGABALIN
     Indication: Bullous impetigo
     Dosage: UNK
     Route: 065

REACTIONS (1)
  - Therapy partial responder [Unknown]
